FAERS Safety Report 12487181 (Version 1)
Quarter: 2016Q2

REPORT INFORMATION
  Report Type: Spontaneous
  Country: US (occurrence: None)
  Receive Date: 20160621
  Receipt Date: 20160621
  Transmission Date: 20160815
  Serious: No
  Sender: FDA-Public Use
  Company Number: None

PATIENT
  Age: 58 Year
  Sex: Male

DRUGS (2)
  1. ATORVASTATIN 80 MG (GENERIC) MYLAN [Suspect]
     Active Substance: ATORVASTATIN
     Indication: BLOOD CHOLESTEROL INCREASED
     Route: 048
     Dates: start: 20150612
  2. ATORVASTATIN 40 MG (GENERIC) MYLAN [Suspect]
     Active Substance: ATORVASTATIN
     Dates: start: 20160614

REACTIONS (1)
  - Eczema [None]

NARRATIVE: CASE EVENT DATE: 20160614
